FAERS Safety Report 9560719 (Version 4)
Quarter: 2013Q4

REPORT INFORMATION
  Report Type: Spontaneous
  Country: JP (occurrence: JP)
  Receive Date: 20130927
  Receipt Date: 20131030
  Transmission Date: 20140711
  Serious: Yes (Other)
  Sender: FDA-Public Use
  Company Number: JP-ABBVIE-13P-087-1152032-00

PATIENT
  Age: 40 Year
  Sex: Male

DRUGS (4)
  1. LIPIDIL [Suspect]
     Indication: GOUT
  2. LOXOPROFEN SODIUM [Concomitant]
     Indication: GOUT
  3. REBAMIPIDE [Concomitant]
     Indication: GOUT
  4. COLCHICINE [Concomitant]
     Indication: GOUT

REACTIONS (5)
  - Vasculitis [Unknown]
  - Drug reaction with eosinophilia and systemic symptoms [Unknown]
  - Tubulointerstitial nephritis [Unknown]
  - Hepatic function abnormal [Unknown]
  - Renal impairment [Unknown]
